FAERS Safety Report 6812142-1 (Version None)
Quarter: 2010Q3

REPORT INFORMATION
  Report Type: 
  Country: None (occurrence: None)
  Receive Date: 20100701
  Receipt Date: 20100310
  Transmission Date: 20110219
  Serious: Yes (Other)
  Sender: FDA-Public Use
  Company Number: US-ABBOTT-10P-163-0624043-00

PATIENT
  Age: 35 Year
  Sex: Female

DRUGS (4)
  1. NORVIR [Suspect]
     Indication: ANTIVIRAL TREATMENT
     Route: 048
  2. REYATAZ [Suspect]
     Indication: ANTIVIRAL TREATMENT
     Route: 048
  3. TRUVADA [Suspect]
     Indication: ANTIVIRAL TREATMENT
     Route: 048
  4. RETROVIR [Suspect]
     Indication: ANTIVIRAL TREATMENT
     Route: 042
     Dates: start: 20100128, end: 20100128

REACTIONS (1)
  - ACUTE MYOCARDIAL INFARCTION [None]
